FAERS Safety Report 19885891 (Version 1)
Quarter: 2021Q3

REPORT INFORMATION
  Report Type: Spontaneous
  Country: CN (occurrence: CN)
  Receive Date: 20210927
  Receipt Date: 20210927
  Transmission Date: 20211014
  Serious: Yes (Other)
  Sender: FDA-Public Use
  Company Number: CN-BAYER-2021A215025

PATIENT
  Age: 66 Year
  Sex: Male
  Weight: 60 kg

DRUGS (2)
  1. AVELOX [Suspect]
     Active Substance: MOXIFLOXACIN HYDROCHLORIDE
     Indication: PNEUMONIA
     Dosage: 0.4 G, QD
     Route: 041
     Dates: start: 20210826, end: 20210827
  2. BIAPENEM [Concomitant]
     Active Substance: BIAPENEM
     Indication: ANTI-INFECTIVE THERAPY
     Dosage: UNK
     Dates: start: 20210826

REACTIONS (4)
  - Delirium [Recovering/Resolving]
  - Ocular icterus [None]
  - Jaundice [None]
  - Confusional state [Recovering/Resolving]

NARRATIVE: CASE EVENT DATE: 20210827
